FAERS Safety Report 18021067 (Version 1)
Quarter: 2020Q3

REPORT INFORMATION
  Report Type: Spontaneous
  Country: US (occurrence: US)
  Receive Date: 20200714
  Receipt Date: 20200714
  Transmission Date: 20201103
  Serious: Yes (Hospitalization)
  Sender: FDA-Public Use
  Company Number: US-009507513-2007USA004138

PATIENT
  Age: 25 Year
  Sex: Male
  Weight: 89.8 kg

DRUGS (2)
  1. KEYTRUDA [Suspect]
     Active Substance: PEMBROLIZUMAB
     Indication: METASTASES TO LIVER
     Dosage: 200 MILLIGRAM, Q3W
     Dates: start: 20200320
  2. DOCETAXEL. [Suspect]
     Active Substance: DOCETAXEL
     Indication: METASTASES TO LIVER
     Dosage: 75 MILLIGRAM/SQ. METER, Q3W
     Dates: start: 20200320

REACTIONS (2)
  - Abdominal pain [Unknown]
  - Radioembolisation [Unknown]

NARRATIVE: CASE EVENT DATE: 20200608
